FAERS Safety Report 4684521-2 (Version None)
Quarter: 2005Q2

REPORT INFORMATION
  Report Type: 
  Country: None (occurrence: None)
  Receive Date: 20050603
  Receipt Date: 20050524
  Transmission Date: 20051028
  Serious: Yes (Other)
  Sender: FDA-Public Use
  Company Number: 2005069179

PATIENT
  Age: 55 Year
  Sex: Female

DRUGS (3)
  1. LIPITOR [Suspect]
     Indication: ILL-DEFINED DISORDER
     Dosage: UNKNOWN (80 MG, UNKNOWN)
  2. ZOLOFT [Suspect]
     Indication: CRYING
     Dosage: 200 MG (200 MG, 1 IN 1 D); ORAL
     Route: 048
  3. DETROL LA [Suspect]
     Indication: INCONTINENCE
     Dosage: 4 MG (4 MG, 1 IN 1 D);

REACTIONS (4)
  - CEREBROVASCULAR ACCIDENT [None]
  - CHOKING [None]
  - CRYING [None]
  - INCONTINENCE [None]
